FAERS Safety Report 7933391-5 (Version None)
Quarter: 2011Q4

REPORT INFORMATION
  Report Type: 
  Country: None (occurrence: None)
  Receive Date: 20111122
  Receipt Date: 20111122
  Transmission Date: 20120403
  Serious: No
  Sender: FDA-Public Use
  Company Number: None

PATIENT
  Age: 40 Year
  Sex: Male
  Weight: 81.646 kg

DRUGS (1)
  1. PROPECIA [Suspect]
     Indication: ALOPECIA
     Dosage: 1
     Dates: start: 20031017, end: 20090710

REACTIONS (9)
  - DEPRESSION [None]
  - LIBIDO DECREASED [None]
  - GENITAL BURNING SENSATION [None]
  - MOOD SWINGS [None]
  - DECREASED INTEREST [None]
  - MENTAL DISORDER [None]
  - IRRITABILITY [None]
  - SOCIAL AVOIDANT BEHAVIOUR [None]
  - ANXIETY [None]
